FAERS Safety Report 14019499 (Version 3)
Quarter: 2018Q4

REPORT INFORMATION
  Report Type: Spontaneous
  Country: US (occurrence: US)
  Receive Date: 20170928
  Receipt Date: 20181023
  Transmission Date: 20190204
  Serious: Yes (Hospitalization)
  Sender: FDA-Public Use
  Company Number: US-CIPLA (EU) LIMITED-STD201510-004069

PATIENT

DRUGS (3)
  1. LAMOTRIGINE. [Suspect]
     Active Substance: LAMOTRIGINE
     Dosage: 600 MG, UNK
     Route: 048
  2. VENLAFAXINE [Suspect]
     Active Substance: VENLAFAXINE HYDROCHLORIDE
     Dosage: 150 MG, 22 CAPSULES (22 DF)
     Route: 048
  3. MELATONIN [Suspect]
     Active Substance: MELATONIN
     Dosage: 25 MG, UNK
     Route: 048

REACTIONS (11)
  - Intentional overdose [Unknown]
  - Suicide attempt [Unknown]
  - Sinus tachycardia [Recovered/Resolved]
  - Pupillary reflex impaired [Unknown]
  - Dizziness [Unknown]
  - Nausea [Unknown]
  - Feeling hot [Unknown]
  - Nystagmus [Unknown]
  - Feeling jittery [Unknown]
  - Mydriasis [Unknown]
  - Tremor [Unknown]
